FAERS Safety Report 7643867-6 (Version None)
Quarter: 2011Q3

REPORT INFORMATION
  Report Type: 
  Country: None (occurrence: None)
  Receive Date: 20110729
  Receipt Date: 20100928
  Transmission Date: 20111222
  Serious: No
  Sender: FDA-Public Use
  Company Number: US-GLAXOSMITHKLINE-A0884320A

PATIENT
  Age: 55 Year
  Sex: Female

DRUGS (4)
  1. IMITREX [Suspect]
     Indication: MIGRAINE
     Dosage: 1TAB UNKNOWN
     Route: 048
  2. SUMATRIPTAN SUCCINATE [Suspect]
     Indication: MIGRAINE
     Dosage: 1TAB UNKNOWN
     Route: 048
  3. MIDRIN [Suspect]
     Indication: MIGRAINE
     Route: 065
  4. FIORICET [Suspect]
     Indication: MIGRAINE
     Route: 065

REACTIONS (1)
  - DRUG INEFFECTIVE [None]
